FAERS Safety Report 12231757 (Version 2)
Quarter: 2016Q2

REPORT INFORMATION
  Report Type: Spontaneous
  Country: US (occurrence: US)
  Receive Date: 20160401
  Receipt Date: 20160407
  Transmission Date: 20160815
  Serious: Yes (Death, Other)
  Sender: FDA-Public Use
  Company Number: US-MDT-ADR-2016-00611

PATIENT
  Age: 64 Year
  Sex: Male

DRUGS (15)
  1. XARELTO [Suspect]
     Active Substance: RIVAROXABAN
     Route: 048
  2. LORAZEPAM. [Suspect]
     Active Substance: LORAZEPAM
     Route: 048
  3. BUPIVACAINE. [Suspect]
     Active Substance: BUPIVACAINE
     Indication: PAIN
     Dosage: 0.23 MG/DAY
     Route: 037
  4. CARVEDILOL. [Suspect]
     Active Substance: CARVEDILOL
     Route: 048
  5. DIHYDROCODEINE [Suspect]
     Active Substance: DIHYDROCODEINE
     Route: 048
  6. COUMADIN [Suspect]
     Active Substance: WARFARIN SODIUM
     Indication: ATRIAL FIBRILLATION
     Route: 048
  7. ETHANOL [Suspect]
     Active Substance: ALCOHOL
     Route: 048
  8. ACETAMINOPHEN. [Suspect]
     Active Substance: ACETAMINOPHEN
     Route: 048
  9. CLONIDINE. [Suspect]
     Active Substance: CLONIDINE
     Indication: PAIN
     Dosage: 460 MCG/DAY
     Route: 037
  10. HYDROCODONE [Suspect]
     Active Substance: HYDROCODONE
     Dosage: UP TO FOUR PER DAY
     Route: 048
  11. DILAUDID [Suspect]
     Active Substance: HYDROMORPHONE HYDROCHLORIDE
     Indication: PAIN
     Dosage: 23 MG/DAY
     Route: 037
  12. ^ARTHRITIS MEDICATIONS^ [Suspect]
     Active Substance: UNSPECIFIED INGREDIENT
     Route: 048
  13. DULOXETINE. [Suspect]
     Active Substance: DULOXETINE
     Route: 048
  14. DICLOFENAC [Suspect]
     Active Substance: DICLOFENAC
     Route: 048
  15. COMPOUNDED BACLOFEN [Suspect]
     Active Substance: BACLOFEN
     Indication: PAIN
     Dosage: 11.5 MCG/DAY
     Route: 037

REACTIONS (4)
  - Cardiac disorder [Unknown]
  - Toxicologic test abnormal [Unknown]
  - Toxicity to various agents [Fatal]
  - Completed suicide [Fatal]

NARRATIVE: CASE EVENT DATE: 20160303
